FAERS Safety Report 23024407 (Version 1)
Quarter: 2023Q4

REPORT INFORMATION
  Report Type: Spontaneous
  Country: CA (occurrence: CA)
  Receive Date: 20231004
  Receipt Date: 20231004
  Transmission Date: 20240110
  Serious: Yes (Other)
  Sender: FDA-Public Use
  Company Number: CA-AUROBINDO-AUR-APL-2023-061059

PATIENT
  Age: 4 Day
  Sex: Male
  Weight: 1 kg

DRUGS (9)
  1. VALGANCICLOVIR [Suspect]
     Active Substance: VALGANCICLOVIR
     Indication: Congenital cytomegalovirus infection
     Dosage: 7.8 MILLIGRAM/KILOGRAM, TWO TIMES A DAY
     Route: 048
  2. VALGANCICLOVIR [Suspect]
     Active Substance: VALGANCICLOVIR
     Dosage: 5.8 MILLIGRAM/KILOGRAM, TWO TIMES A DAY
     Route: 048
  3. VALGANCICLOVIR [Suspect]
     Active Substance: VALGANCICLOVIR
     Dosage: 6.8 MILLIGRAM/KILOGRAM, TWO TIMES A DAY
     Route: 048
  4. VALGANCICLOVIR [Suspect]
     Active Substance: VALGANCICLOVIR
     Dosage: 5.2 MILLIGRAM/KILOGRAM, TWO TIMES A DAY
     Route: 048
  5. VALGANCICLOVIR [Suspect]
     Active Substance: VALGANCICLOVIR
     Indication: Congenital cytomegalovirus infection
     Dosage: 12.0 MILLIGRAM/KILOGRAM, TWO TIMES A DAY
     Route: 048
  6. GANCICLOVIR SODIUM [Suspect]
     Active Substance: GANCICLOVIR SODIUM
     Indication: Congenital cytomegalovirus infection
     Dosage: 2.1 MILLIGRAM/KILOGRAM, 3 TIMES A DAY
     Route: 042
  7. GANCICLOVIR SODIUM [Suspect]
     Active Substance: GANCICLOVIR SODIUM
     Dosage: 2.2 MILLIGRAM/KILOGRAM, TWO TIMES A DAY
     Route: 042
  8. GANCICLOVIR SODIUM [Suspect]
     Active Substance: GANCICLOVIR SODIUM
     Dosage: 2.4 MILLIGRAM/KILOGRAM, 3 TIMES A DAY
     Route: 042
  9. GANCICLOVIR SODIUM [Suspect]
     Active Substance: GANCICLOVIR SODIUM
     Indication: Congenital cytomegalovirus infection
     Dosage: 3.0 MILLIGRAM/KILOGRAM, ONCE A DAY
     Route: 042

REACTIONS (3)
  - Neutropenia neonatal [Unknown]
  - Product use in unapproved indication [Unknown]
  - Product use issue [Unknown]
